FAERS Safety Report 4665050-9 (Version None)
Quarter: 2005Q2

REPORT INFORMATION
  Report Type: 
  Country: None (occurrence: None)
  Receive Date: 20050517
  Receipt Date: 20050503
  Transmission Date: 20051028
  Serious: Yes (Life-Threatening)
  Sender: FDA-Public Use
  Company Number: SUSI-2005-00395

PATIENT
  Age: 60 Year
  Sex: Female

DRUGS (1)
  1. PENTASA [Suspect]
     Indication: COLITIS ULCERATIVE
     Dosage: 2 GRAMS DAILY, ORAL
     Route: 048
     Dates: start: 20050318, end: 20050405

REACTIONS (2)
  - DRUG INTOLERANCE [None]
  - GASTRITIS HAEMORRHAGIC [None]
